FAERS Safety Report 22758801 (Version 2)
Quarter: 2024Q1

REPORT INFORMATION
  Report Type: Report from Study
  Country: FR (occurrence: FR)
  Receive Date: 20230728
  Receipt Date: 20240221
  Transmission Date: 20240410
  Serious: Yes (Other)
  Sender: FDA-Public Use
  Company Number: FR-JNJFOC-20230743703

PATIENT
  Sex: Male

DRUGS (4)
  1. APALUTAMIDE [Suspect]
     Active Substance: APALUTAMIDE
     Indication: Hormone-dependent prostate cancer
     Route: 048
     Dates: start: 20210310, end: 20210526
  2. APALUTAMIDE [Suspect]
     Active Substance: APALUTAMIDE
     Route: 048
     Dates: start: 20210527, end: 20210630
  3. APALUTAMIDE [Suspect]
     Active Substance: APALUTAMIDE
     Route: 048
     Dates: start: 20210701, end: 20210727
  4. APALUTAMIDE [Suspect]
     Active Substance: APALUTAMIDE
     Route: 048
     Dates: start: 20210728

REACTIONS (6)
  - Cardiac failure [Recovered/Resolved]
  - Hypothyroidism [Not Recovered/Not Resolved]
  - Atrial fibrillation [Recovered/Resolved]
  - Asthenia [Not Recovered/Not Resolved]
  - Hot flush [Recovered/Resolved]
  - Arthralgia [Recovered/Resolved]

NARRATIVE: CASE EVENT DATE: 20210501
